FAERS Safety Report 6921408-6 (Version None)
Quarter: 2010Q3

REPORT INFORMATION
  Report Type: 
  Country: None (occurrence: None)
  Receive Date: 20100812
  Receipt Date: 20100730
  Transmission Date: 20110219
  Serious: Yes (Other)
  Sender: FDA-Public Use
  Company Number: PHHY2010BR20114

PATIENT
  Sex: Male

DRUGS (2)
  1. DIOVAN [Suspect]
     Dosage: 320 MG, UNK (AT NIGHT)
  2. DIOVAN [Suspect]
     Dosage: 80 MG, UNK (IN THE MORNING)

REACTIONS (1)
  - INFARCTION [None]
